FAERS Safety Report 10284980 (Version 1)
Quarter: 2014Q3

REPORT INFORMATION
  Report Type: Report from Study
  Country: US (occurrence: US)
  Receive Date: 20140708
  Receipt Date: 20140708
  Transmission Date: 20150326
  Serious: Yes (Other)
  Sender: FDA-Public Use
  Company Number: US-ASTELLAS-2014US008004

PATIENT

DRUGS (4)
  1. BEVACIZUMAB [Suspect]
     Active Substance: BEVACIZUMAB
     Indication: GLIOBLASTOMA
     Dosage: 10 MG/KG, ONCE EVERY 2 WEEKS
     Route: 065
  2. TEMOZOLOMIDE [Suspect]
     Active Substance: TEMOZOLOMIDE
     Indication: GLIOBLASTOMA
     Dosage: 200 MG/M2, AFTER RADIOTHERAPY, 5 DAYS PER 28 DAY CYCLE
     Route: 065
  3. TEMOZOLOMIDE [Suspect]
     Active Substance: TEMOZOLOMIDE
     Route: 065
  4. ERLOTINIB [Suspect]
     Active Substance: ERLOTINIB
     Indication: GLIOBLASTOMA
     Dosage: 150-200MG/DAY ON A CONTINUOUS BASIS 7 DAYS/WK OR 500-600MG/DAY FOR PATIENTS EIAEDS
     Route: 065

REACTIONS (1)
  - Bronchial fistula [Unknown]
